FAERS Safety Report 7917734-4 (Version None)
Quarter: 2011Q4

REPORT INFORMATION
  Report Type: 
  Country: None (occurrence: None)
  Receive Date: 20111116
  Receipt Date: 20111108
  Transmission Date: 20120403
  Serious: Yes (Hospitalization)
  Sender: FDA-Public Use
  Company Number: US-ABBOTT-11P-163-0872306-00

PATIENT
  Sex: Male
  Weight: 102.15 kg

DRUGS (3)
  1. HUMIRA [Suspect]
     Route: 058
     Dates: start: 20100101, end: 20100101
  2. HUMIRA [Suspect]
     Indication: CROHN'S DISEASE
     Route: 058
     Dates: start: 20100101, end: 20100101
  3. HUMIRA [Suspect]
     Route: 058
     Dates: start: 20100101, end: 20100101

REACTIONS (7)
  - COLD SWEAT [None]
  - DEHYDRATION [None]
  - GASTROINTESTINAL INFECTION [None]
  - CROHN'S DISEASE [None]
  - ABDOMINAL PAIN [None]
  - WEIGHT DECREASED [None]
  - DIARRHOEA [None]
